FAERS Safety Report 23064583 (Version 3)
Quarter: 2024Q2

REPORT INFORMATION
  Report Type: Spontaneous
  Country: AU (occurrence: AU)
  Receive Date: 20231013
  Receipt Date: 20240618
  Transmission Date: 20240716
  Serious: Yes (Other)
  Sender: FDA-Public Use
  Company Number: AU-JNJFOC-20231020277

PATIENT
  Age: 73 Year
  Sex: Male
  Weight: 71 kg

DRUGS (8)
  1. VELCADE [Suspect]
     Active Substance: BORTEZOMIB
     Indication: Plasmablastic lymphoma
     Dosage: UNK
     Route: 065
  2. VELCADE [Suspect]
     Active Substance: BORTEZOMIB
     Indication: Richter^s syndrome
  3. CYCLOPHOSPHAMIDE [Suspect]
     Active Substance: CYCLOPHOSPHAMIDE
     Indication: Plasmablastic lymphoma
     Dosage: UNK
     Route: 065
  4. CYCLOPHOSPHAMIDE [Suspect]
     Active Substance: CYCLOPHOSPHAMIDE
     Indication: Richter^s syndrome
  5. PREDNISOLONE [Suspect]
     Active Substance: PREDNISOLONE
     Indication: Plasmablastic lymphoma
     Dosage: UNK
     Route: 065
  6. PREDNISOLONE [Suspect]
     Active Substance: PREDNISOLONE
     Indication: Richter^s syndrome
  7. DOXORUBICIN HYDROCHLORIDE [Suspect]
     Active Substance: DOXORUBICIN HYDROCHLORIDE
     Indication: Plasmablastic lymphoma
     Dosage: UNK
     Route: 065
  8. DOXORUBICIN HYDROCHLORIDE [Suspect]
     Active Substance: DOXORUBICIN HYDROCHLORIDE
     Indication: Richter^s syndrome

REACTIONS (5)
  - Richter^s syndrome [Unknown]
  - B-cell lymphoma recurrent [Unknown]
  - Plasmablastic lymphoma [Unknown]
  - Disease progression [Unknown]
  - Drug resistance [Unknown]

NARRATIVE: CASE EVENT DATE: 20230919
